FAERS Safety Report 20044139 (Version 2)
Quarter: 2022Q2

REPORT INFORMATION
  Report Type: Spontaneous
  Country: US (occurrence: US)
  Receive Date: 20211108
  Receipt Date: 20220509
  Transmission Date: 20220720
  Serious: Yes (Hospitalization)
  Sender: FDA-Public Use
  Company Number: US-LUPIN PHARMACEUTICALS INC.-2021-21720

PATIENT
  Age: 78 Year
  Sex: Male

DRUGS (2)
  1. CARVEDILOL [Suspect]
     Active Substance: CARVEDILOL
     Indication: Ventricular tachycardia
     Dosage: UNK UNK, BID (12.5 [UNIT NOT STATED] TWICE DAILY)
     Route: 065
  2. AMIODARONE [Suspect]
     Active Substance: AMIODARONE
     Indication: Ventricular tachycardia
     Dosage: UNK UNK, BID (200 [UNIT NOT STATED] TWICE DAILY)
     Route: 065

REACTIONS (1)
  - Therapy non-responder [Unknown]
